FAERS Safety Report 5270542-8 (Version None)
Quarter: 2007Q1

REPORT INFORMATION
  Report Type: 
  Country: None (occurrence: None)
  Receive Date: 20070315
  Receipt Date: 20070310
  Transmission Date: 20070707
  Serious: Yes (Other)
  Sender: FDA-Public Use
  Company Number: 223134

PATIENT
  Age: 6 Year
  Sex: Male

DRUGS (1)
  1. NUTROPIN [Suspect]
     Indication: RENAL FAILURE
     Dates: start: 20050301

REACTIONS (1)
  - VENTRICULAR HYPERTROPHY [None]
